FAERS Safety Report 10154895 (Version 1)
Quarter: 2014Q2

REPORT INFORMATION
  Report Type: Spontaneous
  Country: US (occurrence: US)
  Receive Date: 20140506
  Receipt Date: 20140506
  Transmission Date: 20141212
  Serious: Yes (Other)
  Sender: FDA-Public Use
  Company Number: US-SHIRE-US201401725

PATIENT
  Age: 7 Year
  Sex: Male

DRUGS (1)
  1. INTUNIV [Suspect]
     Indication: PSYCHOMOTOR HYPERACTIVITY
     Dosage: 1 MG, UNKNOWN
     Route: 048

REACTIONS (3)
  - Hallucination [Unknown]
  - Dehydration [Unknown]
  - Diarrhoea [Unknown]
